FAERS Safety Report 21418661 (Version 10)
Quarter: 2022Q4

REPORT INFORMATION
  Report Type: Report from Study
  Country: CN (occurrence: None)
  Receive Date: 20221006
  Receipt Date: 20221230
  Transmission Date: 20230113
  Serious: Yes (Hospitalization)
  Sender: FDA-Public Use
  Company Number: CN-ROCHE-3190026

PATIENT
  Age: 61 Year
  Sex: Female
  Weight: 66 kg

DRUGS (42)
  1. BEVACIZUMAB [Suspect]
     Active Substance: BEVACIZUMAB
     Indication: Small cell lung cancer extensive stage
     Dosage: ON 09/SEP/2022, MOST RECENT DOSE PRIOR TO AE WAS ADMINISTERED (986 MG)
     Route: 042
     Dates: start: 20210428
  2. ATEZOLIZUMAB [Suspect]
     Active Substance: ATEZOLIZUMAB
     Indication: Small cell lung cancer extensive stage
     Dosage: ON 09/SEP/2022, MOST RECENT DOSE PRIOR TO AE WAS ADMINISTERED (1200 MG).?1200 MG (AS PER PROTOCOL)
     Route: 041
     Dates: start: 20210428
  3. CARBOPLATIN [Suspect]
     Active Substance: CARBOPLATIN
     Indication: Small cell lung cancer extensive stage
     Dosage: ON 30/JUN/2021, MOST RECENT DOSE OF CARBOPLATIN PRIOR TO AE WAS ADMINISTERED (396 MG)?DOSE: OVER 30
     Route: 042
     Dates: start: 20210428
  4. ETOPOSIDE [Suspect]
     Active Substance: ETOPOSIDE
     Indication: Small cell lung cancer extensive stage
     Dosage: ON 02/JUL /2021, MOST RECENT DOSE OF CARBOPLATIN PRIOR TO AE WAS ADMINISTERED (165 MG)?100 MG/M2 (AS
     Route: 042
     Dates: start: 20210428
  5. DOXOFYLLINE [Concomitant]
     Active Substance: DOXOFYLLINE
     Indication: Chest discomfort
     Route: 042
     Dates: start: 20210526, end: 20210526
  6. COMPOUND CHLORHEXIDINE GARGLE [Concomitant]
     Dates: start: 20210601
  7. COMPOUND CHLORHEXIDINE GARGLE [Concomitant]
     Dates: start: 20210610
  8. COMPOUND CHLORHEXIDINE GARGLE [Concomitant]
     Dates: start: 20220723
  9. LEUCOGEN [Concomitant]
     Active Substance: LEUCOGEN
     Route: 048
     Dates: start: 20210430
  10. METHOXYPHENAMINE HYDROCHLORIDE [Concomitant]
     Active Substance: METHOXYPHENAMINE HYDROCHLORIDE
     Route: 048
     Dates: start: 20210420
  11. EUCALYPTOL [Concomitant]
     Active Substance: EUCALYPTOL
     Route: 048
     Dates: start: 20210415
  12. LIMONENE, (+/-)- [Concomitant]
     Active Substance: LIMONENE, (+/-)-
     Route: 048
     Dates: start: 20210415
  13. OMEPRAZOLE SODIUM [Concomitant]
     Active Substance: OMEPRAZOLE SODIUM
     Indication: Chronic gastritis
     Route: 048
  14. OMEPRAZOLE SODIUM [Concomitant]
     Active Substance: OMEPRAZOLE SODIUM
     Dates: start: 20220929
  15. TROPISETRON HYDROCHLORIDE [Concomitant]
     Active Substance: TROPISETRON HYDROCHLORIDE
     Route: 042
     Dates: start: 20210428, end: 20210430
  16. TROPISETRON HYDROCHLORIDE [Concomitant]
     Active Substance: TROPISETRON HYDROCHLORIDE
     Route: 042
     Dates: start: 20210521
  17. TROPISETRON HYDROCHLORIDE [Concomitant]
     Active Substance: TROPISETRON HYDROCHLORIDE
     Route: 042
     Dates: start: 20210609, end: 20210611
  18. TROPISETRON HYDROCHLORIDE [Concomitant]
     Active Substance: TROPISETRON HYDROCHLORIDE
     Route: 042
     Dates: start: 20210630, end: 20210702
  19. FERROUS SUCCINATE [Concomitant]
     Active Substance: FERROUS SUCCINATE
     Indication: Anaemia
     Route: 048
     Dates: start: 20210720
  20. MEGESTROL ACETATE [Concomitant]
     Active Substance: MEGESTROL ACETATE
     Indication: Prophylaxis
     Route: 048
     Dates: start: 20210705, end: 20210711
  21. PANTOPRAZOLE SODIUM [Concomitant]
     Active Substance: PANTOPRAZOLE SODIUM
     Indication: Chronic gastritis
     Route: 048
     Dates: start: 20110313
  22. RABEPRAZOLE SODIUM [Concomitant]
     Active Substance: RABEPRAZOLE SODIUM
     Indication: Chronic gastritis
     Route: 048
     Dates: start: 20210519
  23. LANSOPRAZOLE [Concomitant]
     Active Substance: LANSOPRAZOLE
     Indication: Chronic gastritis
     Route: 048
     Dates: start: 20201220
  24. ATORVASTATIN CALCIUM [Concomitant]
     Active Substance: ATORVASTATIN CALCIUM
     Indication: Hyperlipidaemia
     Route: 048
     Dates: start: 20140929
  25. SODIUM HYALURONATE [Concomitant]
     Active Substance: HYALURONATE SODIUM
     Indication: Conjunctivitis
     Dates: start: 20211108
  26. PRANOPROFEN [Concomitant]
     Active Substance: PRANOPROFEN
     Indication: Conjunctivitis
     Dates: start: 20210907
  27. CEFACLOR [Concomitant]
     Active Substance: CEFACLOR
     Route: 048
     Dates: start: 20211123
  28. METRONIDAZOLE [Concomitant]
     Active Substance: METRONIDAZOLE
     Indication: Vaginal infection
     Route: 048
     Dates: start: 20210910
  29. ERDOSTEINE [Concomitant]
     Active Substance: ERDOSTEINE
     Route: 048
     Dates: start: 20211218
  30. LEVAMLODIPINE BESYLATE [Concomitant]
     Active Substance: LEVAMLODIPINE BESYLATE
     Indication: Hypertension
     Dates: start: 20220328
  31. BETAHISTINE HYDROCHLORIDE [Concomitant]
     Active Substance: BETAHISTINE HYDROCHLORIDE
     Indication: Dizziness
     Route: 048
     Dates: start: 20220414
  32. METHYLCOBALAMIN [Concomitant]
     Active Substance: METHYLCOBALAMIN
     Indication: Joint injury
     Route: 048
     Dates: start: 20220507
  33. ETORICOXIB [Concomitant]
     Active Substance: ETORICOXIB
     Indication: Adverse event
     Route: 048
     Dates: start: 20220509
  34. SODIUM HYALURONATE [Concomitant]
     Active Substance: HYALURONATE SODIUM
     Indication: Joint injury
     Route: 048
     Dates: start: 20220516, end: 20220530
  35. LIDOCAINE HYDROCHLORIDE [Concomitant]
     Active Substance: LIDOCAINE HYDROCHLORIDE
     Indication: Joint injury
     Dates: start: 20220509, end: 20220530
  36. BENZALKONIUM CHLORIDE [Concomitant]
     Active Substance: BENZALKONIUM CHLORIDE
     Indication: Joint injury
     Dates: start: 20220509
  37. CEFIXIME [Concomitant]
     Active Substance: CEFIXIME
     Route: 048
     Dates: start: 20220410
  38. CEFUROXIME AXETIL [Concomitant]
     Active Substance: CEFUROXIME AXETIL
     Route: 048
     Dates: start: 20220428
  39. ACETAMINOPHEN [Concomitant]
     Active Substance: ACETAMINOPHEN
     Route: 048
     Dates: start: 20220803
  40. BETAMETHASONE SODIUM PHOSPHATE [Concomitant]
     Active Substance: BETAMETHASONE SODIUM PHOSPHATE
     Indication: Chronic sinusitis
     Dosage: DOSE PER DAY: 16
     Route: 042
     Dates: start: 20210702, end: 20210702
  41. BETAMETHASONE SODIUM PHOSPHATE [Concomitant]
     Active Substance: BETAMETHASONE SODIUM PHOSPHATE
     Route: 042
     Dates: start: 20211220, end: 20211221
  42. TRIAMCINOLONE ACETONIDE [Concomitant]
     Active Substance: TRIAMCINOLONE ACETONIDE
     Indication: Joint injury
     Route: 042
     Dates: start: 20220509, end: 20220530

REACTIONS (1)
  - Intussusception [Recovered/Resolved]

NARRATIVE: CASE EVENT DATE: 20220923
